FAERS Safety Report 15180671 (Version 1)
Quarter: 2018Q3

REPORT INFORMATION
  Report Type: Spontaneous
  Country: US (occurrence: US)
  Receive Date: 20180723
  Receipt Date: 20180723
  Transmission Date: 20181010
  Serious: No
  Sender: FDA-Public Use
  Company Number: US-009507513-1807USA004817

PATIENT
  Age: 86 Year
  Sex: Male

DRUGS (4)
  1. DULERA [Suspect]
     Active Substance: FORMOTEROL FUMARATE DIHYDRATE\MOMETASONE FUROATE
     Indication: ASTHMA
     Dosage: 2 PUFFS IN THE MORNING AND 2 PUFFS IN THE EVENING
  2. XANAX [Concomitant]
     Active Substance: ALPRAZOLAM
  3. VENTOLIN [Concomitant]
     Active Substance: ALBUTEROL SULFATE
  4. XARELTO [Concomitant]
     Active Substance: RIVAROXABAN

REACTIONS (4)
  - Drug dose omission [Unknown]
  - Wrong technique in product usage process [Unknown]
  - Malaise [Not Recovered/Not Resolved]
  - Product quality issue [Unknown]

NARRATIVE: CASE EVENT DATE: 20180710
